FAERS Safety Report 5252012-6 (Version None)
Quarter: 2007Q1

REPORT INFORMATION
  Report Type: 
  Country: None (occurrence: None)
  Receive Date: 20070223
  Receipt Date: 20070216
  Transmission Date: 20070707
  Serious: Yes (Hospitalization)
  Sender: FDA-Public Use
  Company Number: 153077USA

PATIENT
  Age: 57 Year
  Sex: Female
  Weight: 62.5964 kg

DRUGS (2)
  1. LOVASTATIN [Suspect]
     Indication: HYPERCHOLESTEROLAEMIA
     Dosage: HOUR OF SLEEP (40 MG, 1 IN 1 D), ORAL
     Route: 048
     Dates: start: 20040301, end: 20061001
  2. SSRI [Concomitant]

REACTIONS (7)
  - AGITATION [None]
  - BURNING SENSATION [None]
  - FEELING ABNORMAL [None]
  - NEUROPATHY PERIPHERAL [None]
  - PSYCHOTIC DISORDER [None]
  - SPEECH DISORDER [None]
  - TREMOR [None]
